FAERS Safety Report 10975341 (Version 1)
Quarter: 2015Q2

REPORT INFORMATION
  Report Type: Spontaneous
  Country: US (occurrence: US)
  Receive Date: 20150401
  Receipt Date: 20150401
  Transmission Date: 20150821
  Serious: No
  Sender: FDA-Public Use
  Company Number: US-PFIZER INC-2015108822

PATIENT
  Age: 72 Year
  Sex: Female
  Weight: 95 kg

DRUGS (1)
  1. CELEBREX [Suspect]
     Active Substance: CELECOXIB
     Indication: PAIN
     Dosage: 200 MG, DAILY
     Route: 048

REACTIONS (6)
  - Muscle spasms [Unknown]
  - Abnormal loss of weight [Unknown]
  - Joint range of motion decreased [Unknown]
  - Somnolence [Unknown]
  - Pain [Not Recovered/Not Resolved]
  - Musculoskeletal stiffness [Unknown]

NARRATIVE: CASE EVENT DATE: 201501
